FAERS Safety Report 8935319 (Version 1)
Quarter: 2012Q4

REPORT INFORMATION
  Report Type: 
  Country: US (occurrence: US)
  Receive Date: 20121129
  Receipt Date: 20121129
  Transmission Date: 20130627
  Serious: Yes (Hospitalization, Congenital Anomaly, Other)
  Sender: FDA-Public Use
  Company Number: US-PFIZER INC-2012296296

PATIENT
  Sex: Male
  Weight: .75 kg

DRUGS (2)
  1. ZOLOFT [Suspect]
     Dosage: UNK
     Route: 064
  2. SERZONE [Concomitant]
     Dosage: 150 mg, 2x/day
     Route: 064
     Dates: start: 19980922

REACTIONS (10)
  - Maternal exposure timing unspecified [Unknown]
  - Patent ductus arteriosus [Unknown]
  - Ileus [Unknown]
  - Neonatal respiratory distress syndrome [Unknown]
  - Phimosis [Unknown]
  - Premature baby [Unknown]
  - Pulmonary haemorrhage [Unknown]
  - Cardiac failure congestive [Unknown]
  - Pneumoperitoneum [Unknown]
  - Inguinal hernia [Unknown]
